FAERS Safety Report 6976938-8 (Version None)
Quarter: 2010Q3

REPORT INFORMATION
  Report Type: 
  Country: None (occurrence: None)
  Receive Date: 20100910
  Receipt Date: 20100830
  Transmission Date: 20110219
  Serious: Yes (Other)
  Sender: FDA-Public Use
  Company Number: US-PFIZER INC-2010109032

PATIENT
  Age: 76 Year
  Sex: Female
  Weight: 68 kg

DRUGS (3)
  1. FLUCONAZOLE [Suspect]
     Indication: MENINGITIS COCCIDIOIDES
     Dosage: 1200 MG DAILY
     Route: 048
  2. FLUCONAZOLE [Suspect]
     Dosage: 1000 MG DAILY
     Route: 048
  3. FLUCONAZOLE [Suspect]
     Dosage: 400 MG DAILY

REACTIONS (2)
  - MACULAR OEDEMA [None]
  - RETINAL TOXICITY [None]
